FAERS Safety Report 14692132 (Version 1)
Quarter: 2018Q1

REPORT INFORMATION
  Report Type: Spontaneous
  Country: US (occurrence: US)
  Receive Date: 20180329
  Receipt Date: 20180329
  Transmission Date: 20180509
  Serious: No
  Sender: FDA-Public Use
  Company Number: US-009507513-1803USA007719

PATIENT
  Sex: Female

DRUGS (1)
  1. NUVARING [Suspect]
     Active Substance: ETHINYL ESTRADIOL\ETONOGESTREL
     Indication: UTERINE LEIOMYOMA
     Dosage: 1 DF, UNK
     Route: 067
     Dates: start: 20180315

REACTIONS (3)
  - Discomfort [Unknown]
  - Feeling abnormal [Unknown]
  - Product use in unapproved indication [Unknown]
